FAERS Safety Report 25460553 (Version 1)
Quarter: 2025Q2

REPORT INFORMATION
  Report Type: Spontaneous
  Country: US (occurrence: US)
  Receive Date: 20250620
  Receipt Date: 20250620
  Transmission Date: 20250717
  Serious: Yes (Other)
  Sender: MYLAN
  Company Number: US-MYLANLABS-2025M1051166

PATIENT
  Age: 50 Year
  Sex: Female

DRUGS (16)
  1. ARGATROBAN [Interacting]
     Active Substance: ARGATROBAN
     Indication: Cardiac ventricular thrombosis
  2. ARGATROBAN [Interacting]
     Active Substance: ARGATROBAN
     Route: 065
  3. ARGATROBAN [Interacting]
     Active Substance: ARGATROBAN
     Route: 065
  4. ARGATROBAN [Interacting]
     Active Substance: ARGATROBAN
  5. WARFARIN [Interacting]
     Active Substance: WARFARIN
     Indication: Cardiac ventricular thrombosis
  6. WARFARIN [Interacting]
     Active Substance: WARFARIN
     Route: 065
  7. WARFARIN [Interacting]
     Active Substance: WARFARIN
     Route: 065
  8. WARFARIN [Interacting]
     Active Substance: WARFARIN
  9. ALBUMIN HUMAN [Interacting]
     Active Substance: ALBUMIN HUMAN
     Indication: Plasmapheresis
  10. ALBUMIN HUMAN [Interacting]
     Active Substance: ALBUMIN HUMAN
     Route: 065
  11. ALBUMIN HUMAN [Interacting]
     Active Substance: ALBUMIN HUMAN
     Route: 065
  12. ALBUMIN HUMAN [Interacting]
     Active Substance: ALBUMIN HUMAN
  13. SODIUM CHLORIDE [Interacting]
     Active Substance: SODIUM CHLORIDE
     Indication: Plasmapheresis
  14. SODIUM CHLORIDE [Interacting]
     Active Substance: SODIUM CHLORIDE
     Route: 065
  15. SODIUM CHLORIDE [Interacting]
     Active Substance: SODIUM CHLORIDE
     Route: 065
  16. SODIUM CHLORIDE [Interacting]
     Active Substance: SODIUM CHLORIDE

REACTIONS (2)
  - Drug interaction [Unknown]
  - Activated partial thromboplastin time prolonged [Unknown]
